FAERS Safety Report 11228674 (Version 1)
Quarter: 2015Q2

REPORT INFORMATION
  Report Type: Spontaneous
  Country: NZ (occurrence: None)
  Receive Date: 20150626
  Receipt Date: 20150626
  Transmission Date: 20150821
  Serious: Yes (Hospitalization)
  Sender: FDA-Public Use
  Company Number: NSR_02145_2015

PATIENT
  Age: 76 Year
  Sex: Female

DRUGS (9)
  1. SPIRONOLACTONE (SPIRONOLACTONE) [Suspect]
     Active Substance: SPIRONOLACTONE
     Indication: PRODUCT USED FOR UNKNOWN INDICATION
     Dosage: (DF)
  2. POTASSIUM (POTASSIUM) [Suspect]
     Active Substance: POTASSIUM
     Indication: PRODUCT USED FOR UNKNOWN INDICATION
     Dosage: (DF)
  3. SALBUTAMOL (SALBUTAMOL) [Suspect]
     Active Substance: ALBUTEROL
     Indication: PRODUCT USED FOR UNKNOWN INDICATION
     Dosage: (DF), (DOSE DECREASED)
  4. PREDNISONE (PREDNISONE) [Suspect]
     Active Substance: PREDNISONE
     Indication: PRODUCT USED FOR UNKNOWN INDICATION
  5. FRUSEMIDE /00032601/ [Suspect]
     Active Substance: FUROSEMIDE
     Indication: PRODUCT USED FOR UNKNOWN INDICATION
  6. THYROXINE [Suspect]
     Active Substance: LEVOTHYROXINE
     Indication: PRODUCT USED FOR UNKNOWN INDICATION
     Dosage: (DF)
  7. MACROLIDES [Concomitant]
     Active Substance: UNSPECIFIED INGREDIENT
  8. PROPRANOLOL [Suspect]
     Active Substance: PROPRANOLOL\PROPRANOLOL HYDROCHLORIDE
     Indication: PRODUCT USED FOR UNKNOWN INDICATION
     Dosage: (DF)
  9. AMOXICILLIN (AMOXICILLIN) [Suspect]
     Active Substance: AMOXICILLIN
     Indication: LOWER RESPIRATORY TRACT INFECTION
     Dosage: (DF)

REACTIONS (16)
  - Orthostatic hypotension [None]
  - Arrhythmia [None]
  - Nerve compression [None]
  - Malaise [None]
  - Muscular weakness [None]
  - Metamorphopsia [None]
  - Fatigue [None]
  - Myopathy [None]
  - Red blood cell sedimentation rate increased [None]
  - Syncope [None]
  - Temporal arteritis [None]
  - Affect lability [None]
  - Lower respiratory tract infection [None]
  - Pulmonary embolism [None]
  - Tearfulness [None]
  - Productive cough [None]
